FAERS Safety Report 4314439-6 (Version None)
Quarter: 2004Q1

REPORT INFORMATION
  Report Type: 
  Country: None (occurrence: None)
  Receive Date: 20040309
  Receipt Date: 20030918
  Transmission Date: 20041129
  Serious: Yes (Hospitalization)
  Sender: FDA-Public Use
  Company Number: GB-BRISTOL-MYERS SQUIBB COMPANY-12387106

PATIENT
  Age: 26 Year
  Sex: Female
  Weight: 55 kg

DRUGS (4)
  1. VIDEX EC [Suspect]
     Indication: HIV INFECTION
     Route: 048
     Dates: start: 20010206
  2. KALETRA [Concomitant]
     Indication: HIV INFECTION
     Dosage: DOSAGE FORM - CAPSULES
     Route: 048
     Dates: start: 20011010
  3. TENOFOVIR [Concomitant]
     Indication: HIV INFECTION
     Route: 048
     Dates: start: 20011010
  4. ONDANSETRON HCL [Concomitant]
     Indication: NAUSEA
     Route: 048
     Dates: start: 20031211, end: 20031213

REACTIONS (5)
  - CAESAREAN SECTION [None]
  - COMPLICATIONS OF MATERNAL EXPOSURE TO THERAPEUTIC DRUGS [None]
  - NORMAL NEWBORN [None]
  - PREGNANCY [None]
  - VIRAL INFECTION [None]
